FAERS Safety Report 7651598-1 (Version None)
Quarter: 2011Q3

REPORT INFORMATION
  Report Type: 
  Country: None (occurrence: None)
  Receive Date: 20110802
  Receipt Date: 20110525
  Transmission Date: 20111222
  Serious: Yes (Other)
  Sender: FDA-Public Use
  Company Number: PHHY2011IT46704

PATIENT
  Sex: Male

DRUGS (2)
  1. GLEEVEC [Suspect]
     Indication: CHRONIC MYELOID LEUKAEMIA
     Dosage: 400 MG, UNK
     Route: 048
     Dates: start: 20020201, end: 20040531
  2. ALLOPURINOL [Concomitant]
     Dosage: 300 MG, UNK

REACTIONS (2)
  - POLYSEROSITIS [None]
  - THERAPEUTIC RESPONSE DECREASED [None]
